FAERS Safety Report 7735719-8 (Version None)
Quarter: 2011Q3

REPORT INFORMATION
  Report Type: 
  Country: None (occurrence: None)
  Receive Date: 20110908
  Receipt Date: 20110829
  Transmission Date: 20111222
  Serious: Yes (Hospitalization)
  Sender: FDA-Public Use
  Company Number: US-BIOGENIDEC-2011BI029452

PATIENT
  Age: 63 Year
  Sex: Female

DRUGS (2)
  1. TYSABRI [Suspect]
     Indication: MULTIPLE SCLEROSIS
     Route: 042
     Dates: start: 20101015
  2. MORPHINE [Concomitant]

REACTIONS (3)
  - KNEE ARTHROPLASTY [None]
  - URINARY TRACT INFECTION [None]
  - DRUG HYPERSENSITIVITY [None]
